FAERS Safety Report 18411454 (Version 3)
Quarter: 2020Q4

REPORT INFORMATION
  Report Type: Spontaneous
  Country: TH (occurrence: TH)
  Receive Date: 20201021
  Receipt Date: 20201211
  Transmission Date: 20210114
  Serious: Yes (Disabling, Other)
  Sender: FDA-Public Use
  Company Number: NVSC2020TH281380

PATIENT
  Age: 40 Year
  Sex: Male
  Weight: 92 kg

DRUGS (1)
  1. RITALIN [Suspect]
     Active Substance: METHYLPHENIDATE HYDROCHLORIDE
     Indication: ATTENTION DEFICIT HYPERACTIVITY DISORDER
     Dosage: 10 MG, TID
     Route: 048
     Dates: start: 202003

REACTIONS (7)
  - Asthenia [Unknown]
  - Fatigue [Unknown]
  - Product label issue [Unknown]
  - Arthralgia [Unknown]
  - Illness [Unknown]
  - Malaise [Unknown]
  - Hepatic enzyme increased [Unknown]

NARRATIVE: CASE EVENT DATE: 202003
